FAERS Safety Report 12365287 (Version 3)
Quarter: 2016Q3

REPORT INFORMATION
  Report Type: Spontaneous
  Country: US (occurrence: US)
  Receive Date: 20160513
  Receipt Date: 20160714
  Transmission Date: 20161109
  Serious: Yes (Disabling, Other)
  Sender: FDA-Public Use
  Company Number: PHEH2015US006362

PATIENT
  Age: 53 Year
  Sex: Male
  Weight: 76.64 kg

DRUGS (8)
  1. METOPROLOL. [Concomitant]
     Active Substance: METOPROLOL
     Indication: PRODUCT USED FOR UNKNOWN INDICATION
     Route: 065
  2. POTASSIUM [Concomitant]
     Active Substance: POTASSIUM
     Indication: PRODUCT USED FOR UNKNOWN INDICATION
     Route: 065
  3. DAILY VITAMINS [Concomitant]
     Indication: PRODUCT USED FOR UNKNOWN INDICATION
     Route: 065
  4. GLEEVEC [Suspect]
     Active Substance: IMATINIB MESYLATE
     Indication: GASTROINTESTINAL STROMAL TUMOUR
     Dosage: UNK UNK, BID
     Route: 048
     Dates: start: 201102
  5. ALPRAZOLAM. [Concomitant]
     Active Substance: ALPRAZOLAM
     Indication: PRODUCT USED FOR UNKNOWN INDICATION
     Route: 065
  6. XANAX [Concomitant]
     Active Substance: ALPRAZOLAM
     Indication: PRODUCT USED FOR UNKNOWN INDICATION
     Route: 065
  7. PRILOSEC [Concomitant]
     Active Substance: OMEPRAZOLE MAGNESIUM
     Indication: PRODUCT USED FOR UNKNOWN INDICATION
     Route: 065
  8. AMBIEN [Interacting]
     Active Substance: ZOLPIDEM TARTRATE
     Indication: INSOMNIA
     Dosage: UNK
     Route: 048
     Dates: start: 2001

REACTIONS (24)
  - Pulmonary mass [Unknown]
  - Disorientation [Unknown]
  - Drug interaction [Unknown]
  - Head injury [Unknown]
  - Metabolic disorder [Not Recovered/Not Resolved]
  - Concussion [Unknown]
  - Drug level increased [Unknown]
  - Fatigue [Unknown]
  - Palpitations [Unknown]
  - Hepatic lesion [Unknown]
  - Alcohol test false positive [Unknown]
  - Erythema [Unknown]
  - Constipation [Unknown]
  - Hypertension [Recovering/Resolving]
  - Road traffic accident [Unknown]
  - Coordination abnormal [Unknown]
  - Insomnia [Unknown]
  - Hypometabolism [Not Recovered/Not Resolved]
  - Weight decreased [Unknown]
  - Solar lentigo [Unknown]
  - Cardiac disorder [Unknown]
  - Sedation [Unknown]
  - Dysarthria [Unknown]
  - Diarrhoea [Unknown]

NARRATIVE: CASE EVENT DATE: 20110301
